FAERS Safety Report 9437809 (Version 1)
Quarter: 2013Q3

REPORT INFORMATION
  Report Type: Spontaneous
  Country: US (occurrence: None)
  Receive Date: 20130802
  Receipt Date: 20130802
  Transmission Date: 20140515
  Serious: Yes (Death, Life-Threatening, Hospitalization, Other)
  Sender: FDA-Public Use
  Company Number: None

PATIENT
  Age: 64 Year
  Sex: Male
  Weight: 77.1 kg

DRUGS (1)
  1. RAVICTI [Suspect]
     Indication: AMINO ACID METABOLISM DISORDER
     Route: 048
     Dates: start: 20130705, end: 20130711

REACTIONS (3)
  - Brain oedema [None]
  - Altered state of consciousness [None]
  - Ammonia increased [None]
